FAERS Safety Report 21806110 (Version 1)
Quarter: 2023Q1

REPORT INFORMATION
  Report Type: Spontaneous
  Country: US (occurrence: US)
  Receive Date: 20230102
  Receipt Date: 20230102
  Transmission Date: 20230417
  Serious: Yes (Other)
  Sender: FDA-Public Use
  Company Number: US-ABBVIE-4255571

PATIENT
  Age: 72 Year
  Sex: Male

DRUGS (2)
  1. LUPRON [Suspect]
     Active Substance: LEUPROLIDE ACETATE
     Indication: Product used for unknown indication
     Route: 030
     Dates: start: 2019
  2. DOCETAXEL [Concomitant]
     Active Substance: DOCETAXEL
     Indication: Product used for unknown indication
     Dates: start: 202209

REACTIONS (11)
  - Metastasis [Unknown]
  - Pain [Unknown]
  - Pain in extremity [Unknown]
  - Bone loss [Unknown]
  - Peripheral swelling [Unknown]
  - Asthenia [Unknown]
  - Multiple fractures [Unknown]
  - Muscle atrophy [Unknown]
  - Chemotherapy [Unknown]
  - Fatigue [Unknown]
  - Loss of personal independence in daily activities [Unknown]

NARRATIVE: CASE EVENT DATE: 20220901
